FAERS Safety Report 21198228 (Version 1)
Quarter: 2022Q3

REPORT INFORMATION
  Report Type: Spontaneous
  Country: US (occurrence: US)
  Receive Date: 20220811
  Receipt Date: 20220811
  Transmission Date: 20221027
  Serious: No
  Sender: FDA-Public Use
  Company Number: ENDG21-08130

PATIENT
  Sex: Female

DRUGS (1)
  1. TRANYLCYPROMINE SULFATE [Suspect]
     Active Substance: TRANYLCYPROMINE SULFATE
     Indication: Product used for unknown indication
     Dosage: 6 DF, DAILY (10 MG)
     Route: 065

REACTIONS (2)
  - Depression [Unknown]
  - Sleep disorder [Unknown]
